FAERS Safety Report 23468915 (Version 2)
Quarter: 2024Q1

REPORT INFORMATION
  Report Type: Spontaneous
  Country: DE (occurrence: DE)
  Receive Date: 20240202
  Receipt Date: 20240202
  Transmission Date: 20240410
  Serious: Yes (Hospitalization, Other)
  Sender: FDA-Public Use
  Company Number: DE-LEO Pharma-366843

PATIENT
  Age: 43 Year
  Sex: Female
  Weight: 85 kg

DRUGS (3)
  1. ADBRY [Suspect]
     Active Substance: TRALOKINUMAB-LDRM
     Indication: Dermatitis atopic
     Dosage: NO POSOLOGY INFORMATION REPORTED (DESPITE: ABDOMEN AS INJECTION SITE).
     Route: 058
     Dates: start: 20221103, end: 20231228
  2. ADBRY [Suspect]
     Active Substance: TRALOKINUMAB-LDRM
     Indication: Dermatitis atopic
     Dosage: NO POSOLOGY INFORMATION REPORTED (DESPITE: ABDOMEN AS INJECTION SITE).
     Route: 058
     Dates: start: 20221103, end: 20231228
  3. ADBRY [Suspect]
     Active Substance: TRALOKINUMAB-LDRM
     Indication: Dermatitis atopic
     Dosage: NO POSOLOGY INFORMATION REPORTED (DESPITE: ABDOMEN AS INJECTION SITE).
     Route: 058
     Dates: start: 20221103, end: 20231228

REACTIONS (7)
  - Spinal stenosis [Unknown]
  - Underdose [Unknown]
  - Back pain [Not Recovered/Not Resolved]
  - Injection site pain [Not Recovered/Not Resolved]
  - Injection site pain [Unknown]
  - Pain in extremity [Not Recovered/Not Resolved]
  - Muscular weakness [Recovered/Resolved]

NARRATIVE: CASE EVENT DATE: 20221103
